FAERS Safety Report 9772390 (Version 3)
Quarter: 2014Q2

REPORT INFORMATION
  Report Type: Report from Study
  Country: GB (occurrence: GB)
  Receive Date: 20131219
  Receipt Date: 20140505
  Transmission Date: 20141212
  Serious: No
  Sender: FDA-Public Use
  Company Number: GB-ROCHE-1319499

PATIENT
  Sex: Male
  Weight: 76.9 kg

DRUGS (2)
  1. TOCILIZUMAB [Suspect]
     Indication: RHEUMATOID ARTHRITIS
     Dosage: DATE OF LAST DOSE PRIOR TO SAE: 01/MAY/2013
     Route: 042
     Dates: start: 20120202, end: 20130529
  2. METHOTREXATE [Suspect]
     Indication: RHEUMATOID ARTHRITIS
     Dosage: DATE OF LAST DOSE PRIOR TO SAE 01/MAY/2013.
     Route: 048
     Dates: start: 20120202, end: 20130529

REACTIONS (2)
  - Enterovesical fistula [Recovered/Resolved with Sequelae]
  - Diverticulum [Recovered/Resolved with Sequelae]
